FAERS Safety Report 9626711 (Version 2)
Quarter: 2013Q4

REPORT INFORMATION
  Report Type: Spontaneous
  Country: FR (occurrence: FR)
  Receive Date: 20131016
  Receipt Date: 20131127
  Transmission Date: 20140711
  Serious: Yes (Hospitalization)
  Sender: FDA-Public Use
  Company Number: FR-ELI_LILLY_AND_COMPANY-FR201310002042

PATIENT
  Age: 47 Year
  Sex: Male

DRUGS (3)
  1. ALIMTA [Suspect]
     Indication: LUNG ADENOCARCINOMA STAGE IV
     Dosage: UNK
     Route: 042
     Dates: end: 20130729
  2. CARBOPLATIN [Suspect]
     Indication: LUNG ADENOCARCINOMA STAGE IV
  3. CISPLATIN [Concomitant]

REACTIONS (9)
  - Febrile bone marrow aplasia [Recovered/Resolved]
  - Renal failure [Recovered/Resolved with Sequelae]
  - Thrombocytopenia [Not Recovered/Not Resolved]
  - Haemolytic anaemia [Not Recovered/Not Resolved]
  - Pleural effusion [Unknown]
  - Pneumonia [Not Recovered/Not Resolved]
  - Thrombotic microangiopathy [Not Recovered/Not Resolved]
  - General physical health deterioration [Unknown]
  - Off label use [Recovered/Resolved]
